FAERS Safety Report 14946090 (Version 1)
Quarter: 2018Q2

REPORT INFORMATION
  Report Type: Spontaneous
  Country: US (occurrence: US)
  Receive Date: 20180529
  Receipt Date: 20180529
  Transmission Date: 20180711
  Serious: Yes (Other)
  Sender: FDA-Public Use
  Company Number: US-WEST-WARD PHARMACEUTICALS CORP.-US-H14001-18-04314

PATIENT
  Age: 47 Year
  Sex: Male

DRUGS (2)
  1. FENTANYL. [Suspect]
     Active Substance: FENTANYL
     Indication: PAIN
     Route: 040
  2. KETAMINE [Suspect]
     Active Substance: KETAMINE
     Indication: PAIN
     Route: 040

REACTIONS (1)
  - Mental impairment [Unknown]
